FAERS Safety Report 16706160 (Version 1)
Quarter: 2019Q3

REPORT INFORMATION
  Report Type: Spontaneous
  Country: US (occurrence: US)
  Receive Date: 20190815
  Receipt Date: 20190815
  Transmission Date: 20191004
  Serious: No
  Sender: FDA-Public Use
  Company Number: US-PFIZER INC-2019347731

PATIENT
  Age: 56 Year
  Sex: Female
  Weight: 61.23 kg

DRUGS (10)
  1. METFORMIN [Concomitant]
     Active Substance: METFORMIN HYDROCHLORIDE
     Indication: DIABETES MELLITUS
     Dosage: 100 MG, 2X/DAY
     Route: 048
     Dates: start: 2015
  2. GLIPIZIDE. [Concomitant]
     Active Substance: GLIPIZIDE
     Indication: DIABETES MELLITUS
     Dosage: 5 MG, UNK
     Dates: start: 2018
  3. IBRANCE [Suspect]
     Active Substance: PALBOCICLIB
     Indication: BREAST CANCER METASTATIC
  4. IBRANCE [Suspect]
     Active Substance: PALBOCICLIB
     Indication: HORMONE REPLACEMENT THERAPY
     Dosage: 125 MG, CYCLIC [ONCE A DAY FOR 21 DAYS, THEN 7 DAYS OFF]
     Route: 048
     Dates: start: 201903
  5. ATORVASTATIN [Concomitant]
     Active Substance: ATORVASTATIN
     Indication: CEREBROVASCULAR ACCIDENT
  6. ATORVASTATIN [Concomitant]
     Active Substance: ATORVASTATIN
     Indication: MYOCARDIAL INFARCTION
     Dosage: 10 MG, 1X/DAY
     Route: 048
  7. ZOMETA [Concomitant]
     Active Substance: ZOLEDRONIC ACID
     Dosage: UNK
     Route: 042
     Dates: start: 201903
  8. IBRANCE [Suspect]
     Active Substance: PALBOCICLIB
     Indication: INFLAMMATORY CARCINOMA OF THE BREAST
     Dosage: 100 MG, UNK
  9. ARIMIDEX [Concomitant]
     Active Substance: ANASTROZOLE
     Indication: HORMONE LEVEL ABNORMAL
     Dosage: 1 MG, 1X/DAY
     Route: 048
     Dates: start: 201812
  10. METOPROLOL. [Concomitant]
     Active Substance: METOPROLOL
     Dosage: 0.5 DF, 2X/DAY [TAKES 1/2 A TABLET TWO TIMES A DAY ]
     Route: 048
     Dates: start: 2018

REACTIONS (1)
  - White blood cell count decreased [Unknown]
